FAERS Safety Report 7256190-9 (Version None)
Quarter: 2011Q1

REPORT INFORMATION
  Report Type: 
  Country: None (occurrence: None)
  Receive Date: 20110129
  Receipt Date: 20100507
  Transmission Date: 20110831
  Serious: Yes (Other)
  Sender: FDA-Public Use
  Company Number: US-ABBOTT-10P-163-0643405-00

PATIENT
  Sex: Male
  Weight: 63.56 kg

DRUGS (8)
  1. XANAX [Concomitant]
     Indication: INSOMNIA
  2. AMLODIPINE [Concomitant]
     Indication: BLOOD PRESSURE
  3. ATENOLOL [Concomitant]
     Indication: PRODUCT USED FOR UNKNOWN INDICATION
     Dates: start: 20060101
  4. BENADRYL [Concomitant]
     Indication: INSOMNIA
  5. MEDROL [Concomitant]
     Indication: ARTHRITIS
     Dates: start: 20010101
  6. XANAX [Concomitant]
     Indication: ANXIETY
     Dosage: PRN WHEN HE WOULD TAKE XANAX 2-3 MG A DAY
     Dates: start: 20050101
  7. HUMIRA [Suspect]
     Indication: PRODUCT USED FOR UNKNOWN INDICATION
     Route: 058
     Dates: start: 20080901
  8. METHIMAZOLE [Concomitant]
     Indication: THYROID DISORDER

REACTIONS (2)
  - LIVER DISORDER [None]
  - ARTHRODESIS [None]
